FAERS Safety Report 6159232-7 (Version None)
Quarter: 2009Q2

REPORT INFORMATION
  Report Type: 
  Country: None (occurrence: None)
  Receive Date: 20090417
  Receipt Date: 20090407
  Transmission Date: 20091009
  Serious: Yes (Other)
  Sender: FDA-Public Use
  Company Number: JP-PFIZER INC-2009196565

PATIENT

DRUGS (5)
  1. ZOLOFT [Suspect]
     Indication: DEPRESSION
     Route: 048
     Dates: start: 20081117
  2. ROHYPNOL [Concomitant]
     Dosage: UNK
     Route: 048
     Dates: start: 20081117
  3. BENZALIN [Concomitant]
     Dosage: UNK
     Route: 048
     Dates: start: 20081118
  4. CERCINE [Concomitant]
     Route: 048
     Dates: start: 20081127, end: 20081130
  5. LEXOTAN [Concomitant]
     Route: 048
     Dates: start: 20081201, end: 20090107

REACTIONS (2)
  - AGGRESSION [None]
  - IRRITABILITY [None]
